FAERS Safety Report 16747956 (Version 2)
Quarter: 2019Q3

REPORT INFORMATION
  Report Type: Spontaneous
  Country: GR (occurrence: GR)
  Receive Date: 20190827
  Receipt Date: 20190905
  Transmission Date: 20191005
  Serious: Yes (Death, Hospitalization, Other)
  Sender: FDA-Public Use
  Company Number: GR-TEVA-2019-GR-1098554

PATIENT
  Age: 66 Year
  Sex: Female

DRUGS (3)
  1. CAPECITABINE. [Suspect]
     Active Substance: CAPECITABINE
     Indication: ADENOCARCINOMA OF COLON
     Dosage: 2000 MG/M2 DAILY; FROM DAY 1- DAY 14, IN A 21 DAY CYCLE; PART OF CAPOX CHEMOTHERAPY REGIMEN
     Route: 065
  2. FILGRASTIM [Suspect]
     Active Substance: FILGRASTIM
     Indication: PANCYTOPENIA
     Route: 065
  3. OXALIPLATIN. [Concomitant]
     Active Substance: OXALIPLATIN
     Indication: ADENOCARCINOMA OF COLON
     Dosage: ON DAY 1, IN A 21 DAY CYCLE; PART OF CAPOX CHEMOTHERAPY REGIMEN
     Route: 065

REACTIONS (19)
  - Respiratory failure [Fatal]
  - Pneumonia [Fatal]
  - Pericardial effusion [Unknown]
  - Toxicity to various agents [Unknown]
  - Diverticulitis [Unknown]
  - Enterocolitis haemorrhagic [Unknown]
  - Atrial fibrillation [Unknown]
  - Neurotoxicity [Unknown]
  - Generalised tonic-clonic seizure [Unknown]
  - Cardiogenic shock [Fatal]
  - Diarrhoea haemorrhagic [Unknown]
  - Drug ineffective [Unknown]
  - Congestive cardiomyopathy [Fatal]
  - Septic shock [Fatal]
  - Mucosal inflammation [Unknown]
  - Pancytopenia [Unknown]
  - Cardiac failure [Fatal]
  - Colitis [Unknown]
  - Steatohepatitis [Unknown]
